FAERS Safety Report 5623074-9 (Version None)
Quarter: 2008Q1

REPORT INFORMATION
  Report Type: 
  Country: None (occurrence: None)
  Receive Date: 20080212
  Receipt Date: 20080208
  Transmission Date: 20080703
  Serious: Yes (Hospitalization)
  Sender: FDA-Public Use
  Company Number: PHRM2008FR00791

PATIENT
  Age: 54 Year
  Sex: Female

DRUGS (8)
  1. LAMISIL [Suspect]
     Indication: WOUND INFECTION
     Dosage: 250 MG, QD
     Route: 048
     Dates: start: 20071130, end: 20080103
  2. CORTISONE [Concomitant]
     Indication: WOUND INFECTION
     Dates: start: 20071130
  3. DIFFU K [Concomitant]
  4. ATARAX [Concomitant]
  5. NEORAL [Concomitant]
  6. DI-ANTALVIC [Concomitant]
  7. LOVENOX [Concomitant]
  8. CELLUVISC [Concomitant]

REACTIONS (3)
  - MAJOR DEPRESSION [None]
  - MOBILITY DECREASED [None]
  - PSORIASIS [None]
